FAERS Safety Report 4387445-3 (Version None)
Quarter: 2004Q2

REPORT INFORMATION
  Report Type: 
  Country: None (occurrence: None)
  Receive Date: 20040629
  Receipt Date: 20040629
  Transmission Date: 20050107
  Serious: Yes (Life-Threatening, Hospitalization, Disabling)
  Sender: FDA-Public Use
  Company Number: None

PATIENT
  Age: 63 Year
  Sex: Female
  Weight: 56.246 kg

DRUGS (1)
  1. CAFERGOT [Suspect]
     Dosage: 1/8 SUPP 1XS DAILY ANAL-053

REACTIONS (4)
  - AMNESIA [None]
  - CIRCULATORY COLLAPSE [None]
  - LOSS OF CONSCIOUSNESS [None]
  - PARALYSIS [None]
